FAERS Safety Report 5170666-X (Version None)
Quarter: 2006Q4

REPORT INFORMATION
  Report Type: 
  Country: None (occurrence: None)
  Receive Date: 20061205
  Receipt Date: 20061117
  Transmission Date: 20070319
  Serious: Yes (Hospitalization)
  Sender: FDA-Public Use
  Company Number: 224784

PATIENT
  Age: 20 Year
  Sex: Male
  Weight: 84 kg

DRUGS (10)
  1. AVASTIN [Suspect]
     Indication: COLORECTAL CANCER METASTATIC
     Dosage: 400 MG, INTRAVENOUS
     Route: 042
     Dates: end: 20060413
  2. IRINOTECAN HCL [Concomitant]
  3. LEUCOVORIN CALCIUM [Concomitant]
  4. FLUOROURACIL [Concomitant]
  5. DEXAMETHASONE [Concomitant]
  6. ENOXAPARIN SODIUM [Concomitant]
  7. KYTRIL [Concomitant]
  8. ANZEMET [Concomitant]
  9. ADEMETIONINE [Concomitant]
  10. FERROUS SULFATE TAB [Concomitant]

REACTIONS (4)
  - ESCHERICHIA INFECTION [None]
  - GASTRIC PERFORATION [None]
  - HYPERTRIGLYCERIDAEMIA [None]
  - PERITONITIS BACTERIAL [None]
